FAERS Safety Report 7070986-8 (Version None)
Quarter: 2010Q4

REPORT INFORMATION
  Report Type: 
  Country: None (occurrence: None)
  Receive Date: 20101029
  Receipt Date: 20101018
  Transmission Date: 20110411
  Serious: Yes (Other)
  Sender: FDA-Public Use
  Company Number: CA-JNJFOC-20101006117

PATIENT
  Sex: Male
  Weight: 63 kg

DRUGS (7)
  1. REMICADE [Suspect]
     Indication: CROHN'S DISEASE
     Route: 042
  2. REMICADE [Suspect]
     Route: 042
  3. COUMADIN [Concomitant]
  4. DILANTIN [Concomitant]
  5. PREDNISONE [Concomitant]
  6. CALCIUM GLUCONATE [Concomitant]
  7. PURINETHOL [Concomitant]

REACTIONS (1)
  - SENSATION OF FOREIGN BODY [None]
